FAERS Safety Report 25224869 (Version 1)
Quarter: 2025Q2

REPORT INFORMATION
  Report Type: Spontaneous
  Country: US (occurrence: US)
  Receive Date: 20250422
  Receipt Date: 20250422
  Transmission Date: 20250717
  Serious: No
  Sender: PFIZER
  Company Number: US-PFIZER INC-PV202300147342

PATIENT
  Age: 74 Year
  Sex: Female
  Weight: 72.562 kg

DRUGS (1)
  1. IBRANCE [Suspect]
     Active Substance: PALBOCICLIB
     Indication: Breast cancer female

REACTIONS (3)
  - Product prescribing error [Unknown]
  - Drug hypersensitivity [Unknown]
  - Nasal congestion [Unknown]
